FAERS Safety Report 13831111 (Version 1)
Quarter: 2017Q3

REPORT INFORMATION
  Report Type: Spontaneous
  Country: US (occurrence: US)
  Receive Date: 20170803
  Receipt Date: 20170803
  Transmission Date: 20171127
  Serious: No
  Sender: FDA-Public Use
  Company Number: GXBR2016US003175

PATIENT
  Age: 72 Year
  Sex: Female
  Weight: 57.6 kg

DRUGS (1)
  1. BETAMETHASONE VALERATE. [Suspect]
     Active Substance: BETAMETHASONE VALERATE
     Indication: NONINFECTIVE SIALOADENITIS
     Dosage: 0.1 %, TID
     Route: 048
     Dates: start: 20161010

REACTIONS (2)
  - Incorrect route of drug administration [Not Recovered/Not Resolved]
  - Drug ineffective [Not Recovered/Not Resolved]

NARRATIVE: CASE EVENT DATE: 20161010
